FAERS Safety Report 6716014-2 (Version None)
Quarter: 2010Q2

REPORT INFORMATION
  Report Type: 
  Country: None (occurrence: None)
  Receive Date: 20100506
  Receipt Date: 20100506
  Transmission Date: 20101027
  Serious: Yes (Life-Threatening, Hospitalization, Other)
  Sender: FDA-Public Use
  Company Number: None

PATIENT
  Sex: Female
  Weight: 100 kg

DRUGS (1)
  1. ORTHO TRI-CYCLEN [Suspect]
     Indication: CONTRACEPTION
     Dosage: 1 TAB DAILY PO; APPROX 4 MONTHS
     Route: 048
     Dates: start: 20091201, end: 20100320

REACTIONS (6)
  - DIARRHOEA [None]
  - DYSPNOEA EXERTIONAL [None]
  - FLANK PAIN [None]
  - NAUSEA [None]
  - PULMONARY EMBOLISM [None]
  - VOMITING [None]
